FAERS Safety Report 20103503 (Version 1)
Quarter: 2021Q4

REPORT INFORMATION
  Report Type: Spontaneous
  Country: US (occurrence: None)
  Receive Date: 20211123
  Receipt Date: 20211123
  Transmission Date: 20220303
  Serious: Yes (Other)
  Sender: FDA-Public Use
  Company Number: None

PATIENT
  Age: 54 Year
  Sex: Female
  Weight: 77.1 kg

DRUGS (11)
  1. BAMLANIVIMAB [Suspect]
     Active Substance: BAMLANIVIMAB
     Indication: COVID-19
     Dosage: OTHER FREQUENCY : ONCE;?
     Route: 042
     Dates: start: 20211119, end: 20211119
  2. ETESEVIMAB [Suspect]
     Active Substance: ETESEVIMAB
     Indication: COVID-19
     Dosage: OTHER FREQUENCY : ONCE;?
     Route: 042
     Dates: start: 20211119, end: 20211119
  3. ESTRADIOL [Concomitant]
     Active Substance: ESTRADIOL
  4. ROSUVASTATIN [Concomitant]
     Active Substance: ROSUVASTATIN
  5. SERTRALINE [Concomitant]
     Active Substance: SERTRALINE HYDROCHLORIDE
  6. KCL [Concomitant]
     Active Substance: POTASSIUM CHLORIDE
  7. FAMOTIDINE [Concomitant]
     Active Substance: FAMOTIDINE
  8. IBUPROFEN [Concomitant]
     Active Substance: IBUPROFEN
  9. CLOBETASOL [Concomitant]
     Active Substance: CLOBETASOL
  10. HYDROCHLOROTHIAZIDE [Concomitant]
     Active Substance: HYDROCHLOROTHIAZIDE
  11. LEVOTHYROXINE [Concomitant]
     Active Substance: LEVOTHYROXINE

REACTIONS (4)
  - Chest discomfort [None]
  - Flushing [None]
  - Erythema [None]
  - Infusion related reaction [None]

NARRATIVE: CASE EVENT DATE: 20211119
